FAERS Safety Report 12221550 (Version 2)
Quarter: 2016Q2

REPORT INFORMATION
  Report Type: Spontaneous
  Country: TW (occurrence: TW)
  Receive Date: 20160330
  Receipt Date: 20160401
  Transmission Date: 20160815
  Serious: Yes (Hospitalization)
  Sender: FDA-Public Use
  Company Number: TW-PFIZER INC-2016169995

PATIENT
  Age: 69 Year
  Sex: Male

DRUGS (1)
  1. INSPRA [Suspect]
     Active Substance: EPLERENONE
     Indication: CARDIAC FAILURE
     Dosage: 25 MG, 1X/DAY
     Route: 048
     Dates: start: 201603, end: 201603

REACTIONS (2)
  - Weight increased [Recovered/Resolved]
  - Urine output decreased [Recovering/Resolving]

NARRATIVE: CASE EVENT DATE: 201603
